FAERS Safety Report 25980275 (Version 1)
Quarter: 2025Q4

REPORT INFORMATION
  Report Type: Spontaneous
  Country: US (occurrence: US)
  Receive Date: 20251030
  Receipt Date: 20251030
  Transmission Date: 20260118
  Serious: Yes (Other)
  Sender: TEVA
  Company Number: US-TEVA-VS-3384576

PATIENT
  Age: 71 Year
  Sex: Female

DRUGS (2)
  1. AUSTEDO XR [Suspect]
     Active Substance: DEUTETRABENAZINE
     Indication: Dyskinesia
     Dosage: DAILY
     Route: 048
  2. AUSTEDO XR [Suspect]
     Active Substance: DEUTETRABENAZINE
     Indication: Dyskinesia
     Dosage: DOSE REDUCED
     Route: 048

REACTIONS (3)
  - Hyperparathyroidism [Unknown]
  - Osteoporosis [Unknown]
  - Somnolence [Not Recovered/Not Resolved]
